FAERS Safety Report 23610612 (Version 2)
Quarter: 2024Q1

REPORT INFORMATION
  Report Type: Spontaneous
  Country: UA (occurrence: None)
  Receive Date: 20240308
  Receipt Date: 20240322
  Transmission Date: 20240410
  Serious: Yes (Hospitalization)
  Sender: FDA-Public Use
  Company Number: 2024A052465

PATIENT
  Age: 20846 Day
  Sex: Female
  Weight: 70 kg

DRUGS (1)
  1. BRILINTA [Suspect]
     Active Substance: TICAGRELOR
     Indication: Glycogen storage disease type VI
     Route: 048
     Dates: start: 20240113, end: 20240209

REACTIONS (4)
  - Asthenia [Recovered/Resolved]
  - Gastritis erosive [Unknown]
  - Melaena [Recovered/Resolved]
  - Chronic gastritis [Unknown]

NARRATIVE: CASE EVENT DATE: 20240206
